FAERS Safety Report 5567314-3 (Version None)
Quarter: 2007Q4

REPORT INFORMATION
  Report Type: 
  Country: None (occurrence: None)
  Receive Date: 20071219
  Receipt Date: 20070104
  Transmission Date: 20080405
  Serious: No
  Sender: FDA-Public Use
  Company Number: US-ABBOTT-07P-163-0355314-00

PATIENT
  Sex: Male
  Weight: 70.37 kg

DRUGS (6)
  1. DILAUDID [Suspect]
     Indication: PAIN
     Route: 048
     Dates: start: 20061001
  2. LANSOPRAZOLE [Concomitant]
     Indication: GASTROOESOPHAGEAL REFLUX DISEASE
     Route: 048
  3. TERAZOSIN HCL [Concomitant]
     Indication: DRUG USE FOR UNKNOWN INDICATION
     Route: 048
  4. SIMVASTATIN [Concomitant]
     Indication: DRUG USE FOR UNKNOWN INDICATION
     Route: 048
  5. QUETIAPINE [Concomitant]
     Indication: ANTIDEPRESSANT THERAPY
     Route: 048
  6. ZOLPIDEM TARTRATE [Concomitant]
     Indication: INSOMNIA
     Route: 048

REACTIONS (2)
  - BREAKTHROUGH PAIN [None]
  - DRUG INEFFECTIVE [None]
